FAERS Safety Report 6703844-6 (Version None)
Quarter: 2010Q2

REPORT INFORMATION
  Report Type: 
  Country: None (occurrence: None)
  Receive Date: 20100430
  Receipt Date: 20100421
  Transmission Date: 20101027
  Serious: Yes (Hospitalization, Other)
  Sender: FDA-Public Use
  Company Number: JP-PFIZER INC-2010048733

PATIENT
  Age: 29 Year
  Sex: Female
  Weight: 41 kg

DRUGS (5)
  1. ZITHROMAC SR [Suspect]
     Indication: PHARYNGITIS
     Dosage: 2 G, 1X/DAY
     Route: 048
     Dates: start: 20100405, end: 20100405
  2. AZULENE SODIUM SULFONATE [Suspect]
     Indication: PHARYNGITIS
     Dates: start: 20100405, end: 20100407
  3. COLDRIN [Concomitant]
     Route: 048
     Dates: start: 20100405, end: 20100407
  4. MUCODYNE [Concomitant]
     Route: 048
     Dates: start: 20100405, end: 20100407
  5. ALL OTHER THERAPEUTIC PRODUCTS [Concomitant]
     Route: 048
     Dates: start: 20100405, end: 20100407

REACTIONS (6)
  - ARTHRALGIA [None]
  - COLD SWEAT [None]
  - DEHYDRATION [None]
  - HEADACHE [None]
  - HYPERSENSITIVITY [None]
  - MALAISE [None]
